FAERS Safety Report 15865215 (Version 2)
Quarter: 2019Q1

REPORT INFORMATION
  Report Type: Report from Study
  Country: IT (occurrence: IT)
  Receive Date: 20190124
  Receipt Date: 20190129
  Transmission Date: 20190417
  Serious: Yes (Hospitalization)
  Sender: FDA-Public Use
  Company Number: IT-MYLANLABS-2019M1006313

PATIENT
  Age: 88 Year
  Sex: Female

DRUGS (8)
  1. MINITRAN [Concomitant]
     Active Substance: NITROGLYCERIN
  2. LASIX [Concomitant]
     Active Substance: FUROSEMIDE
  3. RAMIPRIL. [Suspect]
     Active Substance: RAMIPRIL
     Indication: HYPERTENSION
     Dosage: 2.5 MILLIGRAM, QD
     Route: 048
  4. PANTOPRAZOLE [Concomitant]
     Active Substance: PANTOPRAZOLE
     Dosage: 20 MILLIGRAM
  5. LIXIANA [Concomitant]
     Active Substance: EDOXABAN TOSYLATE
  6. ROSUVASTATIN CALCIUM. [Concomitant]
     Active Substance: ROSUVASTATIN CALCIUM
     Dosage: 5 MILLIGRAM
  7. CORLENTOR [Concomitant]
     Active Substance: IVABRADINE HYDROCHLORIDE
  8. TAVOR (LORAZEPAM) [Concomitant]
     Active Substance: LORAZEPAM

REACTIONS (6)
  - Headache [Recovering/Resolving]
  - Chest pain [Recovering/Resolving]
  - Asthenia [Recovering/Resolving]
  - Dizziness [Recovering/Resolving]
  - Vertigo [Recovering/Resolving]
  - Malaise [Recovering/Resolving]

NARRATIVE: CASE EVENT DATE: 20180624
